FAERS Safety Report 6340766-7 (Version None)
Quarter: 2009Q3

REPORT INFORMATION
  Report Type: 
  Country: None (occurrence: None)
  Receive Date: 20090904
  Receipt Date: 20090902
  Transmission Date: 20100115
  Serious: Yes (Hospitalization)
  Sender: FDA-Public Use
  Company Number: US-BRISTOL-MYERS SQUIBB COMPANY-14764724

PATIENT
  Age: 48 Year
  Sex: Female
  Weight: 79 kg

DRUGS (5)
  1. COUMADIN [Suspect]
     Indication: PULMONARY EMBOLISM
     Dates: start: 20090101, end: 20090801
  2. LOVENOX [Suspect]
     Indication: PULMONARY EMBOLISM
     Dosage: 80MG(2009-AUG09) 60 MG(14AUG09)- RESTARTED DOSE DECRSD TO 60 MG(14AUG09)
     Dates: start: 20090801
  3. AUGMENTIN [Concomitant]
  4. FOLIC ACID [Concomitant]
  5. HEPARIN [Concomitant]
     Dosage: DURATION OF THERAPY: FEW DAYS

REACTIONS (4)
  - HAEMATOMA [None]
  - HAEMORRHAGE [None]
  - HYPERSENSITIVITY [None]
  - IMPAIRED HEALING [None]
